FAERS Safety Report 6572516-3 (Version None)
Quarter: 2010Q1

REPORT INFORMATION
  Report Type: 
  Country: None (occurrence: None)
  Receive Date: 20100205
  Receipt Date: 20100125
  Transmission Date: 20100710
  Serious: Yes (Hospitalization)
  Sender: FDA-Public Use
  Company Number: FR-WYE-H13281610

PATIENT
  Sex: Male

DRUGS (13)
  1. EUPANTOL [Suspect]
     Route: 048
     Dates: end: 20090115
  2. FENOFIBRATE [Suspect]
     Route: 048
     Dates: end: 20090115
  3. MEDIATOR [Suspect]
     Route: 048
     Dates: end: 20090115
  4. IXPRIM [Suspect]
     Route: 048
     Dates: start: 19960101
  5. MEPRONIZINE [Suspect]
     Route: 048
  6. MYCOSTER [Concomitant]
     Dosage: UNKNOWN
     Route: 061
  7. IMPORTAL [Suspect]
     Route: 048
  8. TRANXENE [Suspect]
     Route: 048
  9. IMOVANE [Suspect]
     Route: 048
  10. AVLOCARDYL [Suspect]
     Route: 048
  11. LAROXYL [Suspect]
     Route: 048
  12. ABILIFY [Suspect]
     Route: 048
     Dates: start: 20070101, end: 20090115
  13. OMIX [Suspect]
     Route: 048

REACTIONS (1)
  - PANCREATITIS ACUTE [None]
